FAERS Safety Report 9657716 (Version 3)
Quarter: 2014Q1

REPORT INFORMATION
  Report Type: Spontaneous
  Country: DE (occurrence: DE)
  Receive Date: 20131030
  Receipt Date: 20140204
  Transmission Date: 20141002
  Serious: Yes (Other)
  Sender: FDA-Public Use
  Company Number: PHHY2013DE122650

PATIENT
  Sex: Female
  Weight: 93 kg

DRUGS (10)
  1. SIGNIFOR [Suspect]
     Indication: ACROMEGALY
     Dosage: 1200 UG, PER DAY
     Route: 058
     Dates: start: 201208
  2. SIGNIFOR [Suspect]
     Indication: OFF LABEL USE
     Dosage: 600 UG, PER DAY AFTER EATING
     Route: 058
     Dates: start: 20120903
  3. SOMAVERT [Concomitant]
     Indication: ACROMEGALY
     Dosage: 35 MG, QD
     Dates: start: 2007
  4. SOMATULIN [Concomitant]
     Dosage: 120 MG, EVERY 28 DAYS
  5. DOSTINEX [Concomitant]
     Indication: ACROMEGALY
     Dosage: 1 MG, QW
     Dates: start: 1997
  6. HYDROCORTISONE [Concomitant]
     Dosage: 10 MG, QD
  7. HYDROCORTISONE [Concomitant]
     Dosage: 4 DF, DAILY
     Dates: start: 201210
  8. CYCLOPROGYNOVA [Concomitant]
  9. THYROXINE [Concomitant]
     Dosage: 100 UG
  10. JANUVIA [Concomitant]
     Dosage: 100 MG, QD
     Dates: start: 201209

REACTIONS (3)
  - Blood glucose increased [Recovering/Resolving]
  - Glycosylated haemoglobin increased [Recovering/Resolving]
  - Insulin-like growth factor increased [Recovering/Resolving]
